FAERS Safety Report 22990305 (Version 4)
Quarter: 2025Q4

REPORT INFORMATION
  Report Type: Spontaneous
  Country: US (occurrence: US)
  Receive Date: 20230927
  Receipt Date: 20251002
  Transmission Date: 20260118
  Serious: Yes (Death, Hospitalization, Other)
  Sender: HIKMA
  Company Number: US-HIKMA PHARMACEUTICALS-US-H14001-23-65414

PATIENT
  Age: 68 Year
  Sex: Female
  Weight: 57 kg

DRUGS (23)
  1. CARBOPLATIN [Suspect]
     Active Substance: CARBOPLATIN
     Indication: Squamous cell carcinoma
     Dosage: 390 MILLIGRAM,, AUC 5  ON DAYS ONE, EIGHT AND 15 OF EACH 28-DAY CYCLE
     Route: 042
     Dates: start: 20230421, end: 20230519
  2. CARBOPLATIN [Suspect]
     Active Substance: CARBOPLATIN
     Dosage: 390 MILLIGRAM,, AUC 5  ON DAYS ONE, EIGHT AND 15 OF EACH 28-DAY CYCLE
     Route: 042
     Dates: start: 20230602
  3. PACLITAXEL [Suspect]
     Active Substance: PACLITAXEL
     Dosage: 130 MILLIGRAM, 80 MG/M2, ON DAYS ONE, EIGHT AND 15 OF EACH  28 DAY CYCLE
     Route: 042
     Dates: start: 20230602
  4. PACLITAXEL [Suspect]
     Active Substance: PACLITAXEL
     Indication: Squamous cell carcinoma
     Dosage: 130 MILLIGRAM, 80 MG/M2, ON DAYS ONE, EIGHT AND 15 OF EACH 28 DAY CYCLE
     Route: 042
     Dates: start: 20230421, end: 20230519
  5. RETIFANLIMAB [Suspect]
     Active Substance: RETIFANLIMAB
     Indication: Squamous cell carcinoma
     Dosage: 500 MILLIGRAM, ONCE EVERY 28 DAYS
     Route: 042
     Dates: start: 20230421, end: 20230519
  6. RETIFANLIMAB [Suspect]
     Active Substance: RETIFANLIMAB
     Dosage: UNK
     Route: 065
     Dates: start: 20230602
  7. COMPAZINE [Concomitant]
     Active Substance: PROCHLORPERAZINE MALEATE
     Indication: Product used for unknown indication
     Dosage: UNKNOWN
     Route: 065
     Dates: start: 20130414
  8. DICYCLOMINE HYDROCHLORIDE [Concomitant]
     Active Substance: DICYCLOMINE HYDROCHLORIDE
     Indication: Product used for unknown indication
     Dosage: UNKNOWN
     Route: 065
     Dates: start: 20230422
  9. LIDOCAINE\PRILOCAINE [Concomitant]
     Active Substance: LIDOCAINE\PRILOCAINE
     Indication: Product used for unknown indication
     Dosage: UNKNOWN
     Route: 065
     Dates: start: 202204
  10. MAGNESIUM OXIDE [Concomitant]
     Active Substance: MAGNESIUM OXIDE
     Indication: Product used for unknown indication
     Dosage: UNKNOWN
     Route: 065
     Dates: start: 202303
  11. MEGESTROL [Concomitant]
     Active Substance: MEGESTROL
     Indication: Decreased appetite
     Dosage: UNKNOWN
     Route: 065
     Dates: start: 20230603, end: 20230708
  12. METOCLOPRAMIDE [Concomitant]
     Active Substance: METOCLOPRAMIDE
     Indication: Product used for unknown indication
     Dosage: UNKNOWN
     Route: 065
     Dates: start: 20230502, end: 20230707
  13. NAPROXEN SODIUM [Concomitant]
     Active Substance: NAPROXEN SODIUM
     Indication: Product used for unknown indication
     Dosage: UNK
     Route: 065
     Dates: start: 20230507, end: 20230522
  14. OLANZAPINE [Concomitant]
     Active Substance: OLANZAPINE
     Indication: Product used for unknown indication
     Dosage: UNKNOWN
     Route: 065
     Dates: start: 20230421, end: 20230707
  15. OMEPRAZOLE [Concomitant]
     Active Substance: OMEPRAZOLE
     Indication: Product used for unknown indication
     Dosage: UNKNOWN
     Route: 065
     Dates: start: 20230311
  16. ONDANSETRON [Concomitant]
     Active Substance: ONDANSETRON
     Indication: Product used for unknown indication
     Dosage: UNKNOWN
     Route: 065
     Dates: start: 20230414
  17. ONE A DAY WOMEN^S [ASCORBIC ACID;BETACAROTENE;CALCIUM CARBONATE;CALCIU [Concomitant]
     Indication: Product used for unknown indication
     Dosage: UNKNOWN
     Route: 065
     Dates: start: 2020
  18. OXYCODONE [Concomitant]
     Active Substance: OXYCODONE
     Indication: Product used for unknown indication
     Dosage: UNKNOWN
     Route: 065
     Dates: start: 20230410
  19. POLYETHYLENE GLYCOL 3350 [Concomitant]
     Active Substance: POLYETHYLENE GLYCOL 3350
     Indication: Constipation
     Dosage: UNKNOWN
     Route: 065
     Dates: start: 20230507
  20. PROBIOTICS ONE DAILY SUPPORT [Concomitant]
     Indication: Product used for unknown indication
     Dosage: UNKNOWN
     Route: 065
     Dates: start: 20230703
  21. SUCRALFATE [Concomitant]
     Active Substance: SUCRALFATE
     Indication: Product used for unknown indication
     Dosage: UNKNOWN
     Route: 065
     Dates: start: 20230311
  22. TAMSULOSIN [Concomitant]
     Active Substance: TAMSULOSIN
     Indication: Product used for unknown indication
     Dosage: UNKNOWN
     Route: 065
     Dates: start: 20230519
  23. ZARXIO [Concomitant]
     Active Substance: FILGRASTIM-SNDZ
     Indication: Product used for unknown indication
     Dosage: UNKNOWN
     Route: 065
     Dates: start: 20230713, end: 20230716

REACTIONS (10)
  - Disease progression [Fatal]
  - Sepsis [Recovered/Resolved]
  - Condition aggravated [Unknown]
  - Haematuria [Unknown]
  - Bladder hypertrophy [Unknown]
  - Urinary retention [Unknown]
  - Cystitis [Unknown]
  - Neutropenia [Unknown]
  - Female genital tract fistula [Recovered/Resolved]
  - Abdominal infection [Recovered/Resolved]

NARRATIVE: CASE EVENT DATE: 20230507
